FAERS Safety Report 15770638 (Version 1)
Quarter: 2018Q4

REPORT INFORMATION
  Report Type: Spontaneous
  Country: DE (occurrence: DE)
  Receive Date: 20181228
  Receipt Date: 20181228
  Transmission Date: 20190205
  Serious: Yes (Congenital Anomaly)
  Sender: FDA-Public Use
  Company Number: DE-ALLERGAN-1859390US

PATIENT
  Sex: Male
  Weight: 2.39 kg

DRUGS (10)
  1. CYTOTEC [Concomitant]
     Active Substance: MISOPROSTOL
     Indication: LABOUR INDUCTION
     Dosage: 36.6. GESTATIONAL WEEK
     Route: 064
  2. ESCITALOPRAM OXALATE - BP [Suspect]
     Active Substance: ESCITALOPRAM OXALATE
     Indication: DEPRESSION
     Dosage: 5 MG, QD
     Route: 064
  3. CETIRIZINE [Concomitant]
     Active Substance: CETIRIZINE HYDROCHLORIDE
     Indication: SEASONAL ALLERGY
     Dosage: ADDITIONAL INFO: 25.4. - 29.6. GESTATIONAL WEEK
     Route: 064
  4. PARACETAMOL [Concomitant]
     Active Substance: ACETAMINOPHEN
     Indication: BACK PAIN
     Dosage: 1500 MG, QD; 1000-1500 MG/D, IN TOTAL 2-3 TIMES; ADDITIONAL INFO: 28. - 36.6. GESTATIONAL WEEK
     Route: 064
  5. IBUPROFEN. [Concomitant]
     Active Substance: IBUPROFEN
     Indication: BACK PAIN
     Dosage: 400 MG, PRN, MAX ONCE PER WEEK; 0. - 28. GESTATIONAL WEEK, 0. - 28. GESTATIONAL WEEK
     Route: 064
  6. OLYNTH [Concomitant]
     Active Substance: XYLOMETAZOLINE HYDROCHLORIDE
     Indication: NASOPHARYNGITIS
     Dosage: PRN; ADDITIONAL INFO: 19.1. - 23.4. GESTATIONAL WEEK
     Route: 064
  7. FOLIO FORTE [Concomitant]
     Active Substance: FOLIC ACID\VITAMINS
     Indication: PROPHYLAXIS OF NEURAL TUBE DEFECT
     Dosage: 0.8 MG, QD
     Route: 064
     Dates: start: 20170903
  8. FOLIO FORTE [Concomitant]
     Active Substance: FOLIC ACID\VITAMINS
     Dosage: 0.4 MG, QD
     Route: 064
     Dates: end: 20180519
  9. ESCITALOPRAM OXALATE - BP [Suspect]
     Active Substance: ESCITALOPRAM OXALATE
     Dosage: 10 MG, QD
     Route: 064
  10. MAGNETRANS [Concomitant]
     Indication: ABDOMINAL PAIN
     Dosage: ADDITIONAL INFO: 20. - 36.6. GESTATIONAL WEEK
     Route: 064

REACTIONS (2)
  - Kidney duplex [Not Recovered/Not Resolved]
  - Foetal exposure during pregnancy [Unknown]
